FAERS Safety Report 14921157 (Version 1)
Quarter: 2018Q2

REPORT INFORMATION
  Report Type: Spontaneous
  Country: GB (occurrence: GB)
  Receive Date: 20180521
  Receipt Date: 20180521
  Transmission Date: 20180711
  Serious: Yes (Other)
  Sender: FDA-Public Use
  Company Number: GB-TEVA-2018-GB-894131

PATIENT
  Age: 69 Year
  Sex: Female
  Weight: 69 kg

DRUGS (15)
  1. TEICOPLANIN [Concomitant]
     Active Substance: TEICOPLANIN
     Indication: INFECTION PROPHYLAXIS
     Dosage: IN TOTAL
     Route: 042
     Dates: start: 20171031, end: 20171031
  2. MIDAZOLAM [Suspect]
     Active Substance: MIDAZOLAM HYDROCHLORIDE
     Indication: SEDATION
     Dosage: IN TOTAL
     Route: 042
     Dates: start: 20171031, end: 20171031
  3. PARACETAMOL [Concomitant]
     Active Substance: ACETAMINOPHEN
     Indication: PREMEDICATION
     Dosage: IN TOTAL
     Route: 048
     Dates: start: 20171031, end: 20171031
  4. MARCAIN HEAVY [Suspect]
     Active Substance: BUPIVACAINE HYDROCHLORIDE
     Indication: SPINAL ANAESTHESIA
     Route: 037
     Dates: start: 20171031, end: 20171031
  5. PARACETAMOL [Concomitant]
     Active Substance: ACETAMINOPHEN
     Indication: PAIN
     Dosage: 4 GRAM DAILY;
     Route: 048
  6. TRANEXAMIC ACID. [Concomitant]
     Active Substance: TRANEXAMIC ACID
     Indication: HAEMORRHAGE PROPHYLAXIS
     Dosage: IN TOTAL
     Route: 042
     Dates: start: 20171031, end: 20171031
  7. FENTANYL. [Suspect]
     Active Substance: FENTANYL
     Indication: SPINAL ANAESTHESIA
     Dosage: IN TOTAL
     Route: 037
     Dates: start: 20171031, end: 20171031
  8. ZOMORPH [Suspect]
     Active Substance: MORPHINE SULFATE
     Dosage: IN TOTAL
     Route: 048
     Dates: start: 20171031, end: 20171031
  9. MIDAZOLAM [Suspect]
     Active Substance: MIDAZOLAM HYDROCHLORIDE
     Dosage: IN TOTAL
     Route: 042
     Dates: start: 20171031, end: 20171031
  10. GABAPENTIN. [Concomitant]
     Active Substance: GABAPENTIN
     Indication: PREMEDICATION
     Dosage: IN TOTAL
     Route: 048
     Dates: start: 20171031, end: 20171031
  11. EPINEPHRINE. [Concomitant]
     Active Substance: EPINEPHRINE
     Indication: LOCAL ANAESTHESIA
     Route: 065
     Dates: start: 20171031, end: 20171031
  12. ZOMORPH [Suspect]
     Active Substance: MORPHINE SULFATE
     Indication: PREMEDICATION
     Dosage: 20 MILLIGRAM DAILY;
     Route: 048
  13. BUCCASTEM [Concomitant]
     Active Substance: PROCHLORPERAZINE MALEATE
     Indication: PREMEDICATION
     Dosage: IN TOTAL
     Route: 002
     Dates: start: 20171031, end: 20171031
  14. BUPIVACAINE. [Concomitant]
     Active Substance: BUPIVACAINE
     Indication: LOCAL ANAESTHESIA
     Route: 065
     Dates: start: 20171031, end: 20171031
  15. GENTAMICIN. [Concomitant]
     Active Substance: GENTAMICIN
     Indication: INFECTION PROPHYLAXIS
     Dosage: IN TOTAL
     Route: 042
     Dates: start: 20171031, end: 20171031

REACTIONS (2)
  - Hyperaesthesia [Recovered/Resolved]
  - Drug interaction [Recovered/Resolved]

NARRATIVE: CASE EVENT DATE: 20171031
